FAERS Safety Report 18073422 (Version 14)
Quarter: 2021Q3

REPORT INFORMATION
  Report Type: Spontaneous
  Country: US (occurrence: US)
  Receive Date: 20200727
  Receipt Date: 20210830
  Transmission Date: 20211014
  Serious: No
  Sender: FDA-Public Use
  Company Number: US-GLAXOSMITHKLINE-US2020AMR141436

PATIENT
  Age: 66 Year
  Sex: Female

DRUGS (10)
  1. NIRAPARIB [Suspect]
     Active Substance: NIRAPARIB
     Indication: OVARIAN CANCER
     Dosage: 300 MG, QD
     Route: 048
     Dates: start: 202007, end: 202010
  2. NIRAPARIB [Suspect]
     Active Substance: NIRAPARIB
     Dosage: 200 MG, QD
     Route: 048
  3. COVID?19 VACCINE [Concomitant]
     Indication: COVID-19 PROPHYLAXIS
     Dosage: UNK
     Dates: start: 202102
  4. NIRAPARIB [Suspect]
     Active Substance: NIRAPARIB
     Dosage: 200 MG, QD
     Route: 048
  5. NIRAPARIB [Suspect]
     Active Substance: NIRAPARIB
     Dosage: 200 MG, QD
  6. NIRAPARIB [Suspect]
     Active Substance: NIRAPARIB
     Dosage: 200 MG, QD
  7. NIRAPARIB [Suspect]
     Active Substance: NIRAPARIB
     Indication: OVARIAN CANCER METASTATIC
     Dosage: 300 MG, QD (QPM)
     Dates: start: 20200709
  8. NIRAPARIB [Suspect]
     Active Substance: NIRAPARIB
     Dosage: 200 MG, QD
     Dates: start: 20210223
  9. NIRAPARIB [Suspect]
     Active Substance: NIRAPARIB
     Dosage: 200 MG, QD
  10. NIRAPARIB [Suspect]
     Active Substance: NIRAPARIB
     Dosage: 200 MG, QD
     Route: 048

REACTIONS (27)
  - Hot flush [Unknown]
  - Dry mouth [Unknown]
  - Palpitations [Unknown]
  - Social problem [Unknown]
  - Product availability issue [Unknown]
  - Sleep disorder [Not Recovered/Not Resolved]
  - Peritoneal neoplasm [Not Recovered/Not Resolved]
  - Blood pressure increased [Recovered/Resolved]
  - Dyspnoea [Recovered/Resolved]
  - Decreased appetite [Unknown]
  - Product dose omission issue [Unknown]
  - Anaemia [Recovered/Resolved]
  - Nasopharyngitis [Recovered/Resolved]
  - Insomnia [Not Recovered/Not Resolved]
  - Product storage error [Unknown]
  - Product monitoring error [Unknown]
  - Heart rate increased [Not Recovered/Not Resolved]
  - Feeling jittery [Unknown]
  - Anxiety [Unknown]
  - Dyspepsia [Unknown]
  - Constipation [Recovering/Resolving]
  - Adverse drug reaction [Recovered/Resolved]
  - COVID-19 [Unknown]
  - Sinus disorder [Not Recovered/Not Resolved]
  - Product complaint [Unknown]
  - Sinusitis [Unknown]
  - Drug intolerance [Unknown]

NARRATIVE: CASE EVENT DATE: 202011
